FAERS Safety Report 16458217 (Version 2)
Quarter: 2019Q3

REPORT INFORMATION
  Report Type: Spontaneous
  Country: CH (occurrence: CH)
  Receive Date: 20190620
  Receipt Date: 20190701
  Transmission Date: 20191004
  Serious: Yes (Death, Hospitalization, Other)
  Sender: FDA-Public Use
  Company Number: CH-PFIZER INC-2019261492

PATIENT
  Age: 78 Year
  Sex: Male
  Weight: 74.4 kg

DRUGS (24)
  1. AMLODIPIN GENERICS [Suspect]
     Active Substance: AMLODIPINE BESYLATE
     Dosage: 10 MG, UNK
     Dates: start: 20190513
  2. IMODIUM [Suspect]
     Active Substance: LOPERAMIDE HYDROCHLORIDE
     Dosage: 2 MG, UNK (2-3X/DAY)
  3. BACTRIM DS [Concomitant]
     Active Substance: SULFAMETHOXAZOLE\TRIMETHOPRIM
     Dosage: UNK
     Dates: start: 20190523, end: 20190529
  4. DAFALGAN [Concomitant]
     Active Substance: ACETAMINOPHEN
     Dosage: 1 G, 3X/DAY
     Dates: start: 20190429, end: 20190515
  5. BELOC ZOK [Concomitant]
     Active Substance: METOPROLOL SUCCINATE
     Dosage: 25 MG, DAILY
  6. BRUFEN [Suspect]
     Active Substance: IBUPROFEN
     Dosage: 400 MG, UNK (2-3X/DAY)
  7. LEVEMIR [Suspect]
     Active Substance: INSULIN DETEMIR
     Dosage: UNK
     Dates: start: 20190503
  8. WELLVONE [Suspect]
     Active Substance: ATOVAQUONE
     Dosage: 1500 MG, 1X/DAY (IN THE MORNING)
     Route: 048
     Dates: start: 20190513, end: 20190522
  9. DIOVAN [Concomitant]
     Active Substance: VALSARTAN
     Dosage: 80 MG, DAILY
  10. DIOVAN [Concomitant]
     Active Substance: VALSARTAN
     Dosage: 160 MG, DAILY
     Dates: start: 201905
  11. BENERVA [Suspect]
     Active Substance: THIAMINE HYDROCHLORIDE
     Dosage: 300 MG, 1X/DAY
     Dates: start: 20190515, end: 20190523
  12. ESOMEP [ESOMEPRAZOLE] [Concomitant]
     Dosage: 20 MG, 1X/DAY (1-0-0)
  13. ATORVASTATIN PFIZER [Concomitant]
     Active Substance: ATORVASTATIN
     Dosage: 40 MG, DAILY
  14. DIFLUCAN [Suspect]
     Active Substance: FLUCONAZOLE
     Dosage: 400 MG, 1X/DAY
     Dates: start: 20190502, end: 20190516
  15. NOVORAPID [Suspect]
     Active Substance: INSULIN ASPART
     Dosage: UNK
     Dates: start: 20190503
  16. CEFEPIME [Concomitant]
     Active Substance: CEFEPIME HYDROCHLORIDE
     Dosage: UNK
     Dates: start: 20190522, end: 20190523
  17. FRAGMIN [Concomitant]
     Active Substance: DALTEPARIN SODIUM
     Dosage: UNK
  18. BELOC ZOK [Concomitant]
     Active Substance: METOPROLOL SUCCINATE
     Dosage: 50 MG, DAILY (1-0-0)
     Dates: start: 201905
  19. MABTHERA [Suspect]
     Active Substance: RITUXIMAB
     Dosage: 1000 MG, SINGLE (1000 MG ONCE; IN TOTAL)
     Route: 042
     Dates: start: 20190411, end: 20190411
  20. MESTINON [Concomitant]
     Active Substance: PYRIDOSTIGMINE BROMIDE
     Dosage: 60 MG, 6X/DAILY
  21. CIPRALEX [Suspect]
     Active Substance: ESCITALOPRAM OXALATE
     Dosage: 10 MG, UNK
     Dates: start: 20190509
  22. PIPERACILLIN AND TAZOBACTAM [Concomitant]
     Active Substance: PIPERACILLIN SODIUM\TAZOBACTAM SODIUM
     Dosage: UNK
     Dates: start: 20190522, end: 20190522
  23. ASPIRIN CARDIO [Concomitant]
     Active Substance: ASPIRIN
     Dosage: 100 MG, 1X/DAY (1-0-0)
  24. SPIRICORT [Concomitant]
     Active Substance: PREDNISOLONE
     Dosage: 50 MG, DAILY
     Dates: start: 20190304

REACTIONS (5)
  - Febrile neutropenia [Fatal]
  - Agranulocytosis [Unknown]
  - Aplasia [Fatal]
  - Off label use [Unknown]
  - Product use issue [Unknown]

NARRATIVE: CASE EVENT DATE: 20190429
